FAERS Safety Report 9817890 (Version 2)
Quarter: 2014Q2

REPORT INFORMATION
  Report Type: Spontaneous
  Country: SE (occurrence: SE)
  Receive Date: 20140115
  Receipt Date: 20140414
  Transmission Date: 20141212
  Serious: Yes (Hospitalization)
  Sender: FDA-Public Use
  Company Number: SE-JNJFOC-20140105343

PATIENT
  Age: 21 Year
  Sex: Male

DRUGS (3)
  1. IPREN [Suspect]
     Route: 048
  2. IPREN [Suspect]
     Indication: ARTHRALGIA
     Dosage: 400 MG
     Route: 048
     Dates: start: 20131225, end: 20131229
  3. ALVEDON [Concomitant]
     Indication: PRODUCT USED FOR UNKNOWN INDICATION
     Route: 065

REACTIONS (2)
  - Tubulointerstitial nephritis [Recovered/Resolved]
  - Renal failure acute [Recovered/Resolved]
